FAERS Safety Report 7897769-0 (Version None)
Quarter: 2011Q4

REPORT INFORMATION
  Report Type: 
  Country: None (occurrence: None)
  Receive Date: 20111107
  Receipt Date: 20111026
  Transmission Date: 20120403
  Serious: Yes (Other)
  Sender: FDA-Public Use
  Company Number: US-ROCHE-1007512

PATIENT

DRUGS (1)
  1. ACTIVASE [Suspect]
     Indication: ARTERIOVENOUS FISTULA OCCLUSION

REACTIONS (1)
  - MEDICAL DEVICE COMPLICATION [None]
